FAERS Safety Report 9527784 (Version 1)
Quarter: 2013Q1

REPORT INFORMATION
  Report Type: Spontaneous
  Country: US (occurrence: None)
  Receive Date: 20130314
  Receipt Date: 20130314
  Transmission Date: 20140127
  Serious: No
  Sender: FDA-Public Use
  Company Number: 1211USA008165

PATIENT
  Age: 57 Year
  Sex: Male

DRUGS (3)
  1. PEGINTRON (PEGINTERFERON ALFA-2B) POWDER FOR INJECTION [Suspect]
     Indication: HEPATITIS C
     Dates: start: 20121116
  2. RIBAVIRIN (RIBAVIRIN) TABLET, 200 MG [Suspect]
     Dates: start: 20121116
  3. VICTRELIS (BOCEPREVIR) CAPSULE [Suspect]
     Dates: start: 20121214

REACTIONS (9)
  - Weight decreased [None]
  - Irritability [None]
  - Decreased appetite [None]
  - Malaise [None]
  - Disturbance in attention [None]
  - Asthenia [None]
  - Dizziness [None]
  - Malaise [None]
  - Mental disorder [None]
